FAERS Safety Report 14056337 (Version 3)
Quarter: 2017Q4

REPORT INFORMATION
  Report Type: Spontaneous
  Country: FI (occurrence: FI)
  Receive Date: 20171006
  Receipt Date: 20171025
  Transmission Date: 20180321
  Serious: Yes (Death, Other)
  Sender: FDA-Public Use
  Company Number: FI-ASTRAZENECA-2017SE87634

PATIENT
  Age: 55 Year
  Sex: Female

DRUGS (30)
  1. TRIPTYL [Concomitant]
     Active Substance: AMITRIPTYLINE HYDROCHLORIDE
     Dosage: 50 MG 1-2X2
  2. PANADOL FORTE [Concomitant]
     Active Substance: ACETAMINOPHEN\CAFFEINE
     Dosage: 1 G 1X1-3
  3. IPRAMOL [Concomitant]
     Active Substance: ALBUTEROL SULFATE\IPRATROPIUM BROMIDE
     Dosage: 0.5/2.5 MG/DOSE 1X1-3
  4. MONTELUKAST [Concomitant]
     Active Substance: MONTELUKAST SODIUM
     Indication: ASTHMA
     Dosage: 10 MG X 1
  5. PRIMASPAN [Concomitant]
     Active Substance: ASPIRIN
     Dosage: 100 MG 1X1
  6. ISMEXIN [Concomitant]
     Dosage: 20 MG 1X1
  7. SOMAC [Concomitant]
     Active Substance: PANTOPRAZOLE SODIUM
     Dosage: 40 MG 1X1
  8. EMCONCOR [Concomitant]
     Active Substance: BISOPROLOL FUMARATE
     Dosage: 5 MG 1X1
  9. MIRANAX [Concomitant]
  10. PIPERACILLIN/TAZOBACTAM FRESENIUS KABI [Concomitant]
     Dosage: 4/0.5 G 4G X 3
  11. PRIMPERAN [Concomitant]
     Active Substance: METOCLOPRAMIDE HYDROCHLORIDE
     Dosage: 10 MG 1X3 WHEN NEEDED
  12. ZOFRAN [Concomitant]
     Active Substance: ONDANSETRON HYDROCHLORIDE
     Dosage: 8 MG 1X2 WHEN NEEDED
  13. BURANA [Concomitant]
     Active Substance: IBUPROFEN
     Dosage: 800 MG 1 X 1-3 WHEN NEEDED
  14. BUVENTOL [Concomitant]
     Indication: ASTHMA
     Dosage: WHEN NEEDED
  15. DEXAMETASON [Concomitant]
     Active Substance: DEXAMETHASONE
     Dosage: 1.5 MG, WHEN NEEDED
  16. THYROXIN [Concomitant]
     Active Substance: LEVOTHYROXINE
     Dosage: 100 MICROG 1???X1
  17. KLEXANE [Concomitant]
     Active Substance: ENOXAPARIN
     Dosage: 40MG 1X1
  18. EPIPEN [Concomitant]
     Active Substance: EPINEPHRINE
     Dosage: 300 MICROG 1X1 WHEN NEEDED
  19. OXYNORM [Concomitant]
     Active Substance: OXYCODONE HYDROCHLORIDE
     Dosage: 10 MG 10 MG P.O. WHEN NEEDED
     Route: 048
  20. SYMBICORT [Suspect]
     Active Substance: BUDESONIDE\FORMOTEROL FUMARATE DIHYDRATE
     Indication: ASTHMA
     Dosage: 160/4.5 DAILY DOSE: 1X2 UNKNOWN
     Route: 055
     Dates: start: 20170804, end: 20170820
  21. OXYCODONE [Concomitant]
     Active Substance: OXYCODONE
     Dosage: 10 MG 1X2
  22. DIUREX [Concomitant]
     Active Substance: AMILORIDE HYDROCHLORIDE\HYDROCHLOROTHIAZIDE
     Dosage: 5/50 MG 1X1
  23. OXIKLORIN [Concomitant]
     Active Substance: HYDROXYCHLOROQUINE SULFATE
     Dosage: 300 MG 1 X 1
  24. KALEORID [Concomitant]
     Active Substance: POTASSIUM CHLORIDE
     Dosage: 1 G 1X3
  25. SYMBICORT [Suspect]
     Active Substance: BUDESONIDE\FORMOTEROL FUMARATE DIHYDRATE
     Indication: ASTHMA
     Dosage: 2 X 2 UNKNOWN
     Route: 055
     Dates: start: 2014
  26. DINIT [Concomitant]
     Active Substance: ISOSORBIDE DINITRATE
     Dosage: 1.25 MG/DOSE 1X1-3 WHEN NEEDED
  27. PANACOD [Concomitant]
     Active Substance: ACETAMINOPHEN\CODEINE PHOSPHATE
     Dosage: 500/30 MG 1-2 X 1-3 WHEN NEEDED
  28. BUVENTOL EASYHALER [Concomitant]
     Active Substance: ALBUTEROL SULFATE
     Dosage: 200 MICROG/DOSE 1X1-4 WHEN NEEDED
  29. KALCIPOS-D [Concomitant]
     Active Substance: CALCIUM CARBONATE\CHOLECALCIFEROL
     Dosage: 500 MG/400 IU 1 X 2
  30. XGEVA [Concomitant]
     Active Substance: DENOSUMAB
     Dosage: 120 MG, SEPARATE INSTRUCTION

REACTIONS (6)
  - Accidental use of placebo [Fatal]
  - Breast cancer metastatic [Fatal]
  - Asthma [Recovered/Resolved]
  - Metastases to lung [Unknown]
  - Off label use [Fatal]
  - Metastases to liver [Unknown]

NARRATIVE: CASE EVENT DATE: 201609
